FAERS Safety Report 18148435 (Version 2)
Quarter: 2020Q3

REPORT INFORMATION
  Report Type: Spontaneous
  Country: US (occurrence: US)
  Receive Date: 20200813
  Receipt Date: 20200822
  Transmission Date: 20201103
  Serious: Yes (Hospitalization, Other)
  Sender: FDA-Public Use
  Company Number: US-009507513-2008USA008319

PATIENT
  Age: 29 Year
  Sex: Female

DRUGS (7)
  1. PROZAC [Suspect]
     Active Substance: FLUOXETINE HYDROCHLORIDE
     Indication: DEPRESSION
     Dosage: UNK
     Dates: end: 20170828
  2. ABILIFY [Suspect]
     Active Substance: ARIPIPRAZOLE
     Indication: DEPRESSION
     Dosage: 5 MILLIGRAM
     Route: 048
     Dates: end: 20170828
  3. ESTRADIOL. [Suspect]
     Active Substance: ESTRADIOL
     Indication: FERTILITY INCREASED
     Dosage: CONTINUED TILL 12 WEEKS OF PREGNANCY
     Dates: end: 20170405
  4. LEVOTHYROXINE SODIUM. [Suspect]
     Active Substance: LEVOTHYROXINE SODIUM
     Indication: HYPOTHYROIDISM
     Dosage: UNK
     Dates: end: 20170828
  5. PROGESTERONE. [Suspect]
     Active Substance: PROGESTERONE
     Indication: FERTILITY INCREASED
     Dosage: CONTINUED TILL 12 WEEKS OF PREGNANCY
     Dates: end: 20170405
  6. REMERON [Suspect]
     Active Substance: MIRTAZAPINE
     Indication: DEPRESSION
     Dosage: UNK
     Route: 048
     Dates: end: 20170828
  7. BUSPAR [Suspect]
     Active Substance: BUSPIRONE HYDROCHLORIDE
     Indication: DEPRESSION
     Dosage: UNK
     Dates: end: 20170828

REACTIONS (8)
  - Maternal exposure during pregnancy [Recovered/Resolved]
  - Caesarean section [Recovered/Resolved]
  - Vaginal haemorrhage [Recovered/Resolved]
  - Premature delivery [Unknown]
  - Gestational hypertension [Recovered/Resolved]
  - Gestational hypertension [Recovered/Resolved]
  - Vaginal haemorrhage [Recovered/Resolved]
  - Gestational diabetes [Recovered/Resolved]

NARRATIVE: CASE EVENT DATE: 20170426
